FAERS Safety Report 11560481 (Version 3)
Quarter: 2015Q4

REPORT INFORMATION
  Report Type: Spontaneous
  Country: GB (occurrence: GB)
  Receive Date: 20150928
  Receipt Date: 20151119
  Transmission Date: 20160304
  Serious: Yes (Other)
  Sender: FDA-Public Use
  Company Number: GB-JNJFOC-20150920979

PATIENT
  Sex: Female

DRUGS (1)
  1. SIMPONI [Suspect]
     Active Substance: GOLIMUMAB
     Indication: PRODUCT USED FOR UNKNOWN INDICATION
     Route: 058

REACTIONS (7)
  - Rash macular [Unknown]
  - Night sweats [Unknown]
  - Depressed mood [Unknown]
  - General physical health deterioration [Unknown]
  - Lower respiratory tract infection [Unknown]
  - Flushing [Recovered/Resolved]
  - Rash pruritic [Unknown]
